FAERS Safety Report 9245115 (Version 1)
Quarter: 2013Q2

REPORT INFORMATION
  Report Type: Spontaneous
  Country: SE (occurrence: SE)
  Receive Date: 20130422
  Receipt Date: 20130422
  Transmission Date: 20140414
  Serious: Yes (Other)
  Sender: FDA-Public Use
  Company Number: SE-JNJFOC-20130404495

PATIENT
  Age: 57 Year
  Sex: Male

DRUGS (14)
  1. XEPLION [Suspect]
     Indication: DELUSION
     Route: 030
     Dates: start: 20121129, end: 201302
  2. SIMVASTATIN [Concomitant]
     Route: 065
  3. ENALAPRIL [Concomitant]
     Route: 065
  4. FOLIC ACID [Concomitant]
     Route: 065
  5. ALVEDON [Concomitant]
     Route: 065
  6. BEHEPAN [Concomitant]
     Route: 065
  7. SCHERIPROCT N [Concomitant]
     Route: 065
  8. NORMORIX [Concomitant]
     Route: 065
  9. SELOKENZOC [Concomitant]
     Route: 065
  10. OXASCAND [Concomitant]
     Route: 065
  11. NORVASC [Concomitant]
     Route: 065
  12. TROMBYL [Concomitant]
     Route: 065
  13. IMOVANE [Concomitant]
     Route: 065
  14. MACROGOL [Concomitant]
     Route: 065

REACTIONS (5)
  - Parkinsonian gait [Not Recovered/Not Resolved]
  - Anxiety [Not Recovered/Not Resolved]
  - Depressed mood [Not Recovered/Not Resolved]
  - Asthenia [Not Recovered/Not Resolved]
  - Off label use [Unknown]
